FAERS Safety Report 15158110 (Version 1)
Quarter: 2018Q3

REPORT INFORMATION
  Report Type: Spontaneous
  Country: US (occurrence: US)
  Receive Date: 20180620
  Receipt Date: 20180620
  Transmission Date: 20181010
  Serious: Yes (Other)
  Sender: FDA-Public Use
  Company Number: None

PATIENT
  Age: 23 Month
  Sex: Male
  Weight: 11.7 kg

DRUGS (1)
  1. ETOPOSIDE. [Suspect]
     Active Substance: ETOPOSIDE
     Indication: MEDULLOBLASTOMA
     Route: 042
     Dates: start: 20180519, end: 20180519

REACTIONS (3)
  - Flushing [None]
  - Infusion related reaction [None]
  - Retching [None]

NARRATIVE: CASE EVENT DATE: 20180519
